FAERS Safety Report 7320952-X (Version None)
Quarter: 2011Q1

REPORT INFORMATION
  Report Type: 
  Country: None (occurrence: None)
  Receive Date: 20110228
  Receipt Date: 20110223
  Transmission Date: 20110831
  Serious: Yes (Hospitalization, Other)
  Sender: FDA-Public Use
  Company Number: CO-ROCHE-761522

PATIENT
  Sex: Female

DRUGS (3)
  1. GLIBENCLAMIDE [Concomitant]
     Route: 048
  2. INSULINE [Concomitant]
     Route: 058
  3. XELODA [Suspect]
     Indication: BREAST CANCER
     Route: 048
     Dates: start: 20100531

REACTIONS (2)
  - ARTERIAL THROMBOSIS LIMB [None]
  - AMPUTATION [None]
